FAERS Safety Report 4849021-5 (Version None)
Quarter: 2005Q4

REPORT INFORMATION
  Report Type: 
  Country: None (occurrence: None)
  Receive Date: 20051122
  Receipt Date: 20050908
  Transmission Date: 20060501
  Serious: Yes (Other)
  Sender: FDA-Public Use
  Company Number: US-JNJFOC-20050800479

PATIENT
  Age: 46 Year
  Sex: Male
  Weight: 87.9978 kg

DRUGS (14)
  1. RISPERDAL CONSTA [Suspect]
     Indication: SCHIZOPHRENIA
     Dosage: SEE IMAGE
     Route: 030
     Dates: start: 20050301
  2. RISPERDAL CONSTA [Suspect]
     Indication: SCHIZOPHRENIA
     Dosage: 6 MG, IN 1 DAY, ORAL
     Route: 048
     Dates: start: 20040412
  3. DILANTIN [Suspect]
     Indication: EPILEPSY
     Dosage: SEE IMAGE
     Route: 048
     Dates: end: 20050701
  4. DILANTIN [Suspect]
     Indication: EPILEPSY
     Dosage: SEE IMAGE
     Route: 048
     Dates: start: 20050701
  5. SYNTHROID [Concomitant]
  6. PRILOSEC [Concomitant]
  7. ATIVAN (LORAZEM) [Concomitant]
  8. REGLAN [Concomitant]
  9. COLACE (DOCUSATE SODIUM) [Concomitant]
  10. LORATADINE [Concomitant]
  11. RANITIDINE (RANITIDE) [Concomitant]
  12. IBUPROFEN [Concomitant]
  13. RISPERDAL CONSTA [Suspect]
  14. RISPERDAL CONSTA [Suspect]

REACTIONS (5)
  - DRUG INTERACTION [None]
  - DRUG LEVEL DECREASED [None]
  - GRAND MAL CONVULSION [None]
  - HALLUCINATION [None]
  - THERAPEUTIC RESPONSE DECREASED [None]
